FAERS Safety Report 17610863 (Version 1)
Quarter: 2020Q2

REPORT INFORMATION
  Report Type: Spontaneous
  Country: US (occurrence: US)
  Receive Date: 20200401
  Receipt Date: 20200401
  Transmission Date: 20200713
  Serious: Yes (Hospitalization)
  Sender: FDA-Public Use
  Company Number: None

PATIENT
  Age: 58 Year
  Sex: Female

DRUGS (4)
  1. GLEEVEC [Suspect]
     Active Substance: IMATINIB MESYLATE
     Indication: CARCINOID TUMOUR
     Route: 048
     Dates: start: 20180116
  2. GLEEVEC [Suspect]
     Active Substance: IMATINIB MESYLATE
     Indication: NEOPLASM MALIGNANT
     Route: 048
     Dates: start: 20180116
  3. GLEEVEC [Suspect]
     Active Substance: IMATINIB MESYLATE
     Indication: NEOPLASM MALIGNANT
     Route: 048
     Dates: start: 20180116
  4. GLEEVEC [Suspect]
     Active Substance: IMATINIB MESYLATE
     Indication: CARCINOID TUMOUR
     Route: 048
     Dates: start: 20180116

REACTIONS (2)
  - Therapy interrupted [None]
  - Renal disorder [None]

NARRATIVE: CASE EVENT DATE: 20200328
